FAERS Safety Report 5117499-8 (Version None)
Quarter: 2006Q3

REPORT INFORMATION
  Report Type: 
  Country: None (occurrence: None)
  Receive Date: 20060926
  Receipt Date: 20060906
  Transmission Date: 20061208
  Serious: Yes (Other)
  Sender: FDA-Public Use
  Company Number: US200608003584

PATIENT
  Age: 51 Year
  Sex: Male
  Weight: 95.7 kg

DRUGS (4)
  1. CYMBALTA [Suspect]
     Indication: BIPOLAR DISORDER
     Dosage: 30 MG, UNK, UNK
     Dates: end: 20060730
  2. CYMBALTA [Suspect]
     Indication: BIPOLAR DISORDER
     Dosage: 30 MG, UNK, UNK
     Dates: start: 20060719
  3. OTHER ANTIHYPERTENSIVES [Concomitant]
  4. RISPERIDONE [Concomitant]

REACTIONS (1)
  - HYPERTENSION [None]
